FAERS Safety Report 4386361-0 (Version None)
Quarter: 2004Q2

REPORT INFORMATION
  Report Type: 
  Country: None (occurrence: None)
  Receive Date: 20040623
  Receipt Date: 20040609
  Transmission Date: 20050107
  Serious: Yes (Death, Other)
  Sender: FDA-Public Use
  Company Number: JP_040603377

PATIENT
  Age: 66 Year
  Sex: Male

DRUGS (4)
  1. GEMZAR [Suspect]
     Indication: BLADDER CANCER
     Dosage: 1000 MG OTHER
  2. GEMZAR [Suspect]
     Indication: METASTASES TO LIVER
     Dosage: 1000 MG OTHER
  3. CARBOPLATIN [Concomitant]
  4. DOCETAXEL [Concomitant]

REACTIONS (4)
  - BLADDER CANCER [None]
  - BONE MARROW DEPRESSION [None]
  - HEPATIC FUNCTION ABNORMAL [None]
  - MALIGNANT NEOPLASM PROGRESSION [None]
